FAERS Safety Report 20794078 (Version 1)
Quarter: 2022Q2

REPORT INFORMATION
  Report Type: Spontaneous
  Country: US (occurrence: US)
  Receive Date: 20220506
  Receipt Date: 20220506
  Transmission Date: 20220720
  Serious: No
  Sender: FDA-Public Use
  Company Number: US-BRISTOL-MYERS SQUIBB COMPANY-2022-030675

PATIENT
  Age: 83 Year
  Sex: Female
  Weight: 68.04 kg

DRUGS (4)
  1. ELIQUIS [Suspect]
     Active Substance: APIXABAN
     Indication: Atrial fibrillation
     Dosage: DOSE : UNAVAILABLE (NOT PROVIDED);     FREQ : TWO TIMES A DAY
     Route: 048
     Dates: start: 202111
  2. SYNTHROID [Concomitant]
     Active Substance: LEVOTHYROXINE SODIUM
     Indication: Product used for unknown indication
     Route: 065
  3. ATENOLOL [Concomitant]
     Active Substance: ATENOLOL
     Indication: Product used for unknown indication
     Dosage: FREQUENCY:9 HALF TABLET OF 25 MG
     Route: 065
  4. LORAZEPAM [Concomitant]
     Active Substance: LORAZEPAM

REACTIONS (3)
  - Fatigue [Unknown]
  - Peripheral swelling [Unknown]
  - Chills [Unknown]

NARRATIVE: CASE EVENT DATE: 20211101
